FAERS Safety Report 6686724-4 (Version None)
Quarter: 2010Q2

REPORT INFORMATION
  Report Type: 
  Country: None (occurrence: None)
  Receive Date: 20100414
  Receipt Date: 20100330
  Transmission Date: 20101027
  Serious: Yes (Hospitalization)
  Sender: FDA-Public Use
  Company Number: 551398

PATIENT
  Age: 64 Year
  Sex: Female
  Weight: 81.6 kg

DRUGS (12)
  1. NOVOCAIN [Suspect]
     Indication: ANAESTHESIA
     Dates: start: 20100223, end: 20100223
  2. DILANTIN [Suspect]
     Indication: CONVULSION
     Dosage: 200 MG, ONCE
     Dates: start: 20100223, end: 20100223
  3. LIGNOSPAN FORTE [Suspect]
     Indication: DRUG USE FOR UNKNOWN INDICATION
     Dates: start: 20100223, end: 20100223
  4. COPAXONE [Concomitant]
  5. (METOPROLOL) [Concomitant]
  6. DILANTIN [Concomitant]
  7. BACLOFEN [Concomitant]
  8. VESICARE [Concomitant]
  9. (ECOTRIN) [Concomitant]
  10. (MULTIVIT) [Concomitant]
  11. (CALCIUM W/VITAMIN D /00188401/) [Concomitant]
  12. LIPITOR [Concomitant]

REACTIONS (2)
  - ANAPHYLACTIC REACTION [None]
  - MYOCARDIAL INFARCTION [None]
